FAERS Safety Report 8478227-1 (Version None)
Quarter: 2012Q2

REPORT INFORMATION
  Report Type: 
  Country: None (occurrence: None)
  Receive Date: 20120629
  Receipt Date: 20120627
  Transmission Date: 20120825
  Serious: Yes (Other)
  Sender: FDA-Public Use
  Company Number: PHEH2012US009155

PATIENT
  Sex: Female

DRUGS (6)
  1. ANASTROZOLE [Concomitant]
     Dosage: 1 MG, UNK
  2. VITAMIN D [Concomitant]
     Dosage: UNK UKN, UNK
  3. MECLIZINE [Concomitant]
     Dosage: 25 MG, UNK
  4. METOPROLOL SUCCINATE [Concomitant]
     Dosage: 50 MG, UNK
  5. DIOVAN [Suspect]
     Dosage: 320 MG, QD
     Route: 048
  6. EYE DROPS [Concomitant]
     Dosage: UNK UKN, UNK

REACTIONS (1)
  - BREAST CANCER [None]
